FAERS Safety Report 18324488 (Version 1)
Quarter: 2020Q3

REPORT INFORMATION
  Report Type: Spontaneous
  Country: US (occurrence: US)
  Receive Date: 20200929
  Receipt Date: 20200929
  Transmission Date: 20201103
  Serious: No
  Sender: FDA-Public Use
  Company Number: US-BION-008392

PATIENT
  Sex: Male
  Weight: 99.79 kg

DRUGS (2)
  1. IMODIUM A?D [Suspect]
     Active Substance: LOPERAMIDE HYDROCHLORIDE
     Indication: ILL-DEFINED DISORDER
     Dosage: DOSE: 2?3 SOFTGELS
     Route: 048
     Dates: start: 20171111, end: 20191111
  2. INSULIN [Concomitant]
     Active Substance: INSULIN NOS

REACTIONS (6)
  - Product taste abnormal [Unknown]
  - Product use in unapproved indication [Not Recovered/Not Resolved]
  - Product package associated injury [Unknown]
  - Therapeutic product effect delayed [Not Recovered/Not Resolved]
  - Product packaging issue [Unknown]
  - Product use complaint [Unknown]
